FAERS Safety Report 12796194 (Version 1)
Quarter: 2016Q3

REPORT INFORMATION
  Report Type: Spontaneous
  Country: FI (occurrence: FI)
  Receive Date: 20160929
  Receipt Date: 20160929
  Transmission Date: 20161109
  Serious: Yes (Hospitalization)
  Sender: FDA-Public Use
  Company Number: FI-TEVA-693861ISR

PATIENT
  Age: 84 Year
  Sex: Male

DRUGS (1)
  1. TAMSUMIN [Suspect]
     Active Substance: TAMSULOSIN
     Indication: BENIGN PROSTATIC HYPERPLASIA
     Dates: start: 20160622

REACTIONS (7)
  - Swollen tongue [Not Recovered/Not Resolved]
  - Inappropriate schedule of drug administration [Unknown]
  - Tongue paralysis [Not Recovered/Not Resolved]
  - Product substitution issue [Unknown]
  - Dysphagia [Not Recovered/Not Resolved]
  - Dysarthria [Not Recovered/Not Resolved]
  - Malaise [Unknown]

NARRATIVE: CASE EVENT DATE: 20160622
